FAERS Safety Report 23668748 (Version 2)
Quarter: 2024Q2

REPORT INFORMATION
  Report Type: Report from Study
  Country: US (occurrence: US)
  Receive Date: 20240325
  Receipt Date: 20240509
  Transmission Date: 20240716
  Serious: Yes (Other)
  Sender: FDA-Public Use
  Company Number: US-BRIAN CONNER SVP QUALITY AND CHIEF COMPLIANCE OFFICER-2022XER00037

PATIENT
  Age: 58 Year
  Sex: Female

DRUGS (8)
  1. KEVEYIS [Suspect]
     Active Substance: DICHLORPHENAMIDE
     Indication: Paralysis
     Dosage: 1 TABLET (50 MG), 2X/DAY
     Route: 048
     Dates: start: 20191023
  2. KEVEYIS [Suspect]
     Active Substance: DICHLORPHENAMIDE
     Dosage: 1 TABLET (50 MG), 2X/DAY
     Route: 048
  3. KEVEYIS [Suspect]
     Active Substance: DICHLORPHENAMIDE
     Dosage: 1 TABLET (50 MG), 2X/DAY
     Route: 048
  4. KEVEYIS [Suspect]
     Active Substance: DICHLORPHENAMIDE
     Dosage: 1 TABLET (50 MG), 2X/DAY
     Route: 048
  5. KEVEYIS [Suspect]
     Active Substance: DICHLORPHENAMIDE
     Dosage: 1 TABLET (50 MG), 2X/DAY
     Route: 048
  6. KEVEYIS [Suspect]
     Active Substance: DICHLORPHENAMIDE
     Dosage: 1 TABLET (50 MG), 2X/DAY
     Route: 048
  7. KEVEYIS [Suspect]
     Active Substance: DICHLORPHENAMIDE
     Dosage: 1 TABLET (50 MG), 2X/DAY
     Route: 048
  8. LEQVIO [Suspect]
     Active Substance: INCLISIRAN SODIUM

REACTIONS (14)
  - Drug interaction [Unknown]
  - Asthma [Unknown]
  - Diabetes mellitus [Unknown]
  - Paralysis [Unknown]
  - Vertigo [Unknown]
  - Exposure to allergen [Unknown]
  - Influenza [Recovering/Resolving]
  - Blood cholesterol abnormal [Unknown]
  - Dysarthria [Unknown]
  - Drooling [Unknown]
  - Speech disorder [Unknown]
  - Malaise [Unknown]
  - Dizziness [Unknown]
  - Intentional underdose [Not Recovered/Not Resolved]

NARRATIVE: CASE EVENT DATE: 20230301
